FAERS Safety Report 8987344 (Version 1)
Quarter: 2012Q4

REPORT INFORMATION
  Report Type: Report from Study
  Country: IN (occurrence: IN)
  Receive Date: 20121226
  Receipt Date: 20121226
  Transmission Date: 20130627
  Serious: Yes (Death, Hospitalization)
  Sender: FDA-Public Use
  Company Number: IN-INCYTE CORPORATION-2012IN002594

PATIENT
  Age: 65 Year
  Sex: Male

DRUGS (2)
  1. INC424 [Suspect]
     Indication: MYELOFIBROSIS
     Dosage: 10 mg, bid
     Route: 048
     Dates: start: 20120511
  2. BLOOD TRANSFUSION, AUXILIARY PRODUCTS [Concomitant]

REACTIONS (1)
  - Dengue fever [Fatal]
